FAERS Safety Report 22009028 (Version 2)
Quarter: 2023Q1

REPORT INFORMATION
  Report Type: Spontaneous
  Country: US (occurrence: US)
  Receive Date: 20230220
  Receipt Date: 20230323
  Transmission Date: 20230417
  Serious: No
  Sender: FDA-Public Use
  Company Number: US-LEO Pharma-349351

PATIENT
  Sex: Female

DRUGS (1)
  1. ADBRY [Suspect]
     Active Substance: TRALOKINUMAB-LDRM
     Indication: Dermatitis atopic
     Dosage: DOSAGE : 300 MG UNDER THE SKIN EVERY TWO WEEKS
     Route: 058
     Dates: start: 20230124

REACTIONS (3)
  - Adverse event [Unknown]
  - Eye pain [Unknown]
  - Stomatitis [Unknown]
